FAERS Safety Report 7005001-5 (Version None)
Quarter: 2010Q3

REPORT INFORMATION
  Report Type: 
  Country: None (occurrence: None)
  Receive Date: 20100921
  Receipt Date: 20100909
  Transmission Date: 20110219
  Serious: Yes (Death, Hospitalization, Other)
  Sender: FDA-Public Use
  Company Number: GB-AMGEN-US381871

PATIENT
  Sex: Male
  Weight: 96 kg

DRUGS (8)
  1. ENBREL [Suspect]
     Indication: RHEUMATOID ARTHRITIS
     Route: 058
     Dates: start: 20030930, end: 20090101
  2. BENDROFLUMETHIAZIDE [Concomitant]
     Dosage: UNKNOWN
  3. RAMIPRIL [Concomitant]
     Dosage: UNKNOWN
  4. AMLODIPINE [Concomitant]
     Dosage: UNKNOWN
  5. SIMVASTATIN [Concomitant]
     Dosage: UNKNOWN
  6. PREDNISOLONE [Concomitant]
     Dosage: 5G (FREQUENCY UNKNOWN)
  7. ACETYLSALICYLIC ACID [Concomitant]
     Dosage: UNKNOWN
  8. UNSPECIFIED INHALER [Concomitant]

REACTIONS (2)
  - METASTATIC GASTRIC CANCER [None]
  - TYPE 2 DIABETES MELLITUS [None]
